FAERS Safety Report 8464589-8 (Version None)
Quarter: 2012Q2

REPORT INFORMATION
  Report Type: 
  Country: None (occurrence: None)
  Receive Date: 20120620
  Receipt Date: 20120620
  Transmission Date: 20120825
  Serious: Yes (Other)
  Sender: FDA-Public Use
  Company Number: None

PATIENT
  Age: 76 Year
  Sex: Female

DRUGS (1)
  1. ENBREL [Suspect]
     Dosage: 50MG Q7D SQ
     Route: 058
     Dates: start: 20120320, end: 20120618

REACTIONS (2)
  - INFECTION [None]
  - BONE DISORDER [None]
